FAERS Safety Report 4590992-2 (Version None)
Quarter: 2005Q1

REPORT INFORMATION
  Report Type: 
  Country: None (occurrence: None)
  Receive Date: 20050218
  Receipt Date: 20050128
  Transmission Date: 20050727
  Serious: Yes (Hospitalization, Other)
  Sender: FDA-Public Use
  Company Number: 2005021185

PATIENT
  Age: 83 Year
  Sex: Male

DRUGS (8)
  1. ATORVASTATIN CALCIUM [Suspect]
     Indication: DYSLIPIDAEMIA
     Dosage: 10 MG (10 MG, 1 IN 1 D), ORAL
     Route: 048
  2. ASPIRIN [Concomitant]
  3. NITROGLYCERIN [Concomitant]
  4. SALMETEROL (SALMETEROL) [Concomitant]
  5. TERBUTALINE SULFATE [Concomitant]
  6. METFORMIN HCL [Concomitant]
  7. REPAGLINIDE (REPAGLINIDE) [Concomitant]
  8. IPRATROPIUM BROMIDE [Concomitant]

REACTIONS (13)
  - CHOLESTASIS [None]
  - CHOLURIA [None]
  - CYTOLYTIC HEPATITIS [None]
  - HEPATIC STEATOSIS [None]
  - HEPATITIS C POSITIVE [None]
  - HEPATOMEGALY [None]
  - HEPATOTOXICITY [None]
  - LIVER DISORDER [None]
  - LUNG DISORDER [None]
  - PLEURISY [None]
  - PULMONARY ARTERY DILATATION [None]
  - RESPIRATORY TRACT INFECTION [None]
  - WEIGHT DECREASED [None]
